FAERS Safety Report 14211688 (Version 4)
Quarter: 2018Q2

REPORT INFORMATION
  Report Type: Spontaneous
  Country: US (occurrence: US)
  Receive Date: 20171122
  Receipt Date: 20180413
  Transmission Date: 20180711
  Serious: No
  Sender: FDA-Public Use
  Company Number: US-PFIZER INC-2017499650

PATIENT
  Age: 43 Year
  Sex: Female
  Weight: 65 kg

DRUGS (8)
  1. METHOTREXATE. [Suspect]
     Active Substance: METHOTREXATE
     Indication: RHEUMATOID ARTHRITIS
     Dosage: UNK UNK, WEEKLY
     Route: 048
  2. XANAX [Concomitant]
     Active Substance: ALPRAZOLAM
     Dosage: 0.5 MG, AS NEEDED
     Route: 048
  3. METHOTREXATE SODIUM. [Suspect]
     Active Substance: METHOTREXATE SODIUM
     Indication: RHEUMATOID ARTHRITIS
     Dosage: 0.6 ML, WEEKLY (1 (ONE) SYRINGE INJECTION 0.6 ML)
     Route: 058
     Dates: start: 20171112
  4. ZOLOFT [Concomitant]
     Active Substance: SERTRALINE HYDROCHLORIDE
     Dosage: 50 MG, DAILY
     Route: 048
  5. CYANOCOBALAMIN. [Concomitant]
     Active Substance: CYANOCOBALAMIN
     Dosage: 0.2 ML, MONTHLY
     Route: 058
     Dates: start: 20171112
  6. CELEBREX [Concomitant]
     Active Substance: CELECOXIB
     Dosage: 200 MG, DAILY
     Route: 048
  7. INSULIN [Concomitant]
     Active Substance: INSULIN NOS
     Dosage: UNK, WEEKLY (31G X 5/16^1 ML MISC, 1 (ONE) SYRINGE )
     Dates: start: 20171112
  8. PREDNISONE. [Concomitant]
     Active Substance: PREDNISONE
     Dosage: 10 MG, DAILY
     Route: 048

REACTIONS (4)
  - Rash [Unknown]
  - Abdominal pain [Recovered/Resolved]
  - Rash pruritic [Unknown]
  - Drug ineffective [Not Recovered/Not Resolved]
